FAERS Safety Report 6566489-7 (Version None)
Quarter: 2010Q1

REPORT INFORMATION
  Report Type: 
  Country: None (occurrence: None)
  Receive Date: 20100128
  Receipt Date: 20090302
  Transmission Date: 20100710
  Serious: Yes (Other)
  Sender: FDA-Public Use
  Company Number: 2009VX000358

PATIENT
  Age: 32 Year
  Sex: Male

DRUGS (1)
  1. ANCOBON [Suspect]
     Indication: FUNGAL INFECTION
     Dosage: PO
     Route: 048

REACTIONS (2)
  - BONE MARROW FAILURE [None]
  - LEUKOPENIA [None]
